FAERS Safety Report 8418518-3 (Version None)
Quarter: 2012Q2

REPORT INFORMATION
  Report Type: 
  Country: None (occurrence: None)
  Receive Date: 20120530
  Receipt Date: 20120516
  Transmission Date: 20120825
  Serious: Yes (Other)
  Sender: FDA-Public Use
  Company Number: JPI-P-021513

PATIENT
  Age: 49 Year
  Sex: Female

DRUGS (2)
  1. XYREM [Suspect]
     Indication: CATAPLEXY
     Dosage: 3 GM (1.5; 3 GM, 2 IN 1 D), ORAL
     Route: 048
     Dates: start: 20060509, end: 20071023
  2. XYREM [Suspect]
     Indication: CATAPLEXY
     Dosage: 3 GM (1.5; 3 GM, 2 IN 1 D), ORAL
     Route: 048
     Dates: start: 20071024

REACTIONS (1)
  - BREAST CANCER [None]
